FAERS Safety Report 16904381 (Version 7)
Quarter: 2022Q4

REPORT INFORMATION
  Report Type: Report from Study
  Country: AT (occurrence: AT)
  Receive Date: 20191010
  Receipt Date: 20221212
  Transmission Date: 20230113
  Serious: Yes (Other)
  Sender: FDA-Public Use
  Company Number: AT-ROCHE-2415586

PATIENT
  Age: 67 Year
  Sex: Female
  Weight: 89 kg

DRUGS (66)
  1. TRASTUZUMAB [Suspect]
     Active Substance: TRASTUZUMAB
     Indication: HER2 positive breast cancer
     Dosage: 712 MILLIGRAM, Q3WK/MOST RECENT DOSE OF TRASTUZUMAB PRIOR TO THE EVENT: 07/NOV/2018
     Route: 042
     Dates: start: 20170324
  2. TRASTUZUMAB [Suspect]
     Active Substance: TRASTUZUMAB
     Dosage: 534 MILLIGRAM, Q3WK
     Route: 040
     Dates: start: 20170414, end: 20170619
  3. TRASTUZUMAB [Suspect]
     Active Substance: TRASTUZUMAB
     Dosage: 534 MILLIGRAM, Q3WK
     Route: 042
     Dates: start: 20170714, end: 20170804
  4. TRASTUZUMAB [Suspect]
     Active Substance: TRASTUZUMAB
     Dosage: 480 MILLIGRAM, Q3WK
     Route: 042
     Dates: start: 20170828, end: 20171030
  5. TRASTUZUMAB [Suspect]
     Active Substance: TRASTUZUMAB
     Dosage: 474 MILLIGRAM, Q3WK
     Route: 042
     Dates: start: 20171213, end: 20180514
  6. TRASTUZUMAB [Suspect]
     Active Substance: TRASTUZUMAB
     Dosage: 462 MILLIGRAM, Q3WK
     Route: 042
     Dates: start: 20180608, end: 20180608
  7. TRASTUZUMAB [Suspect]
     Active Substance: TRASTUZUMAB
     Dosage: 468 MILLIGRAM, Q3WK
     Route: 042
     Dates: start: 20180608, end: 20180608
  8. TRASTUZUMAB [Suspect]
     Active Substance: TRASTUZUMAB
     Dosage: 450 MILLIGRAM, Q3WK
     Route: 042
     Dates: start: 20180723, end: 20180904
  9. TRASTUZUMAB [Suspect]
     Active Substance: TRASTUZUMAB
     Dosage: 438 MILLIGRAM, Q3WK
     Route: 041
     Dates: start: 20180926, end: 20180926
  10. TRASTUZUMAB [Suspect]
     Active Substance: TRASTUZUMAB
     Dosage: 438 MILLIGRAM, Q3WK/MOST RECENT DOSE PRIOR TO THE EVENT: 19/DEC/2018
     Route: 041
     Dates: start: 20181017, end: 20181017
  11. TRASTUZUMAB [Suspect]
     Active Substance: TRASTUZUMAB
     Dosage: 420 MILLIGRAM, Q3WK
     Route: 041
     Dates: start: 20181107, end: 20181107
  12. TRASTUZUMAB [Suspect]
     Active Substance: TRASTUZUMAB
     Dosage: 420 MILLIGRAM, Q3WK
     Route: 030
     Dates: start: 20181128, end: 20181128
  13. TRASTUZUMAB [Suspect]
     Active Substance: TRASTUZUMAB
     Dosage: 420 MILLIGRAM, Q3WK
     Route: 041
     Dates: start: 20181128, end: 20181128
  14. TRASTUZUMAB [Suspect]
     Active Substance: TRASTUZUMAB
     Dosage: 408 MILLIGRAM, Q3WK/ON 24/APR/2020, MOST RECENT DOSE
     Route: 041
     Dates: start: 20181219
  15. TRASTUZUMAB [Suspect]
     Active Substance: TRASTUZUMAB
     Dosage: 408 MILLIGRAM, Q3WK, ON 24/APR/2020, MOST RECENT DOSE
     Route: 041
     Dates: start: 20181219
  16. TRASTUZUMAB [Suspect]
     Active Substance: TRASTUZUMAB
     Dosage: 408 MILLIGRAM, Q3WK
     Route: 041
     Dates: start: 20181219, end: 20200424
  17. TRASTUZUMAB [Suspect]
     Active Substance: TRASTUZUMAB
     Dosage: 450 MILLIGRAM, Q3WK
     Route: 042
     Dates: start: 20200515, end: 20210402
  18. XGEVA [Suspect]
     Active Substance: DENOSUMAB
     Indication: Breast cancer metastatic
     Dosage: 120 MILLIGRAM, QMO
     Route: 058
     Dates: start: 20170505, end: 20180329
  19. XGEVA [Suspect]
     Active Substance: DENOSUMAB
     Dosage: UNK
     Route: 065
     Dates: start: 20181017, end: 20201127
  20. XGEVA [Suspect]
     Active Substance: DENOSUMAB
     Dosage: 120 MILLIGRAM, QMO
     Route: 058
     Dates: start: 20200310, end: 20201127
  21. XGEVA [Suspect]
     Active Substance: DENOSUMAB
     Dosage: 120 MILLIGRAM, QMO
     Route: 058
     Dates: start: 20210302
  22. PERTUZUMAB [Suspect]
     Active Substance: PERTUZUMAB
     Indication: HER2 positive breast cancer
     Dosage: 840 MILLIGRAM, Q3WK/MOST RECENT DOSE OF PERTUZUMAB PRIOR TO THE EVENT: 23/JUL/2018
     Route: 042
     Dates: start: 20170324, end: 20170324
  23. PERTUZUMAB [Suspect]
     Active Substance: PERTUZUMAB
     Dosage: 420 MILLIGRAM, Q3WK
     Route: 042
     Dates: start: 20170414, end: 20170619
  24. PERTUZUMAB [Suspect]
     Active Substance: PERTUZUMAB
     Dosage: 420 MILLIGRAM, Q3WK
     Route: 042
     Dates: start: 20170714, end: 20180608
  25. PERTUZUMAB [Suspect]
     Active Substance: PERTUZUMAB
     Dosage: 420 MILLIGRAM, Q3WK
     Route: 042
     Dates: start: 20171213, end: 20180608
  26. PERTUZUMAB [Suspect]
     Active Substance: PERTUZUMAB
     Dosage: 420 MILLIGRAM, Q3WK
     Route: 042
     Dates: start: 20180723, end: 20210402
  27. DOCETAXEL [Suspect]
     Active Substance: DOCETAXEL
     Indication: HER2 positive breast cancer
     Dosage: 137 MILLIGRAM, Q3WK/MOST RECENT DOSE OF DOCETAXEL PRIOR TO THE EVENT: 17/OCT/2018
     Route: 042
     Dates: start: 20180608, end: 20180608
  28. DOCETAXEL [Suspect]
     Active Substance: DOCETAXEL
     Dosage: 134.32 MILLIGRAM, Q3WK
     Route: 042
     Dates: start: 20180723, end: 20180904
  29. DOCETAXEL [Suspect]
     Active Substance: DOCETAXEL
     Dosage: 132.78 MILLIGRAM, Q3WK
     Route: 042
     Dates: start: 20180926, end: 20180926
  30. DOCETAXEL [Suspect]
     Active Substance: DOCETAXEL
     Dosage: 106.22 MILLIGRAM, Q3WK
     Route: 042
     Dates: start: 20181017, end: 20181017
  31. ANASTROZOLE [Suspect]
     Active Substance: ANASTROZOLE
     Indication: HER2 positive breast cancer
     Dosage: 1 MILLIGRAM, QD/DATE OF MOST RECENT DOSE OF ANASTROZOLE: 14/MAY/2018
     Route: 048
     Dates: start: 20170324, end: 20180514
  32. FULVESTRANT [Suspect]
     Active Substance: FULVESTRANT
     Indication: HER2 positive breast cancer
     Dosage: 500 MILLIGRAM, Q2WK/MOST RECENT DOSE OF FULVESTRANT PRIOR TO THE EVENT: 26/DEC/2018
     Route: 030
     Dates: start: 20181128
  33. FULVESTRANT [Suspect]
     Active Substance: FULVESTRANT
     Dosage: 500 MILLIGRAM, Q4WK
     Route: 030
     Dates: start: 20181226
  34. FOSTER [Concomitant]
     Active Substance: BECLOMETHASONE\FORMOTEROL
     Indication: Dyspnoea
     Dosage: UNK
     Dates: start: 20171120
  35. TORSEMIDE [Concomitant]
     Active Substance: TORSEMIDE
     Indication: Hypertension
     Dosage: UNK
     Dates: start: 20180214
  36. RANITIDINE HYDROCHLORIDE [Concomitant]
     Active Substance: RANITIDINE HYDROCHLORIDE
     Dosage: UNK
     Dates: start: 20170414
  37. DEXABENE [Concomitant]
     Dosage: UNK
     Dates: start: 20181107
  38. KYTRIL [Concomitant]
     Active Substance: GRANISETRON HYDROCHLORIDE
     Dosage: UNK
     Dates: start: 20180608
  39. ACETAMINOPHEN [Concomitant]
     Active Substance: ACETAMINOPHEN
     Dosage: UNK
     Dates: start: 20180715
  40. DEXAMETHASONE [Concomitant]
     Active Substance: DEXAMETHASONE
     Dosage: UNK
     Dates: start: 20181017
  41. PANTOPRAZOLE [Concomitant]
     Active Substance: PANTOPRAZOLE
     Dosage: UNK
  42. BISOPROLOL FUMARATE [Concomitant]
     Active Substance: BISOPROLOL FUMARATE
     Indication: Hypertension
     Dosage: UNK
     Dates: start: 20180814
  43. POLYETHYLENE GLYCOL 3350\POTASSIUM CHLORIDE\SODIUM BICARBONATE\SODIUM [Concomitant]
     Active Substance: POLYETHYLENE GLYCOL 3350\POTASSIUM CHLORIDE\SODIUM BICARBONATE\SODIUM CHLORIDE
     Dosage: UNK
     Dates: start: 20180715
  44. DIMETHINDENE [Concomitant]
     Active Substance: DIMETHINDENE
     Dosage: UNK
     Dates: start: 20170414
  45. CALCIUM CARBONATE\CHOLECALCIFEROL [Concomitant]
     Active Substance: CALCIUM CARBONATE\CHOLECALCIFEROL
     Dosage: UNK
     Dates: start: 20170505
  46. HYDROCHLOROTHIAZIDE\RAMIPRIL [Concomitant]
     Active Substance: HYDROCHLOROTHIAZIDE\RAMIPRIL
     Dosage: UNK
     Dates: end: 20200424
  47. NOVALGIN (METAMIZOLE SODIUM) [Concomitant]
     Active Substance: METAMIZOLE SODIUM
     Indication: Pain
     Dosage: UNK
     Dates: start: 20180715
  48. ASPIRIN [Concomitant]
     Active Substance: ASPIRIN
     Indication: Hypertension
     Dosage: UNK
     Dates: start: 20171120, end: 20190615
  49. DAPAGLIFLOZIN [Concomitant]
     Active Substance: DAPAGLIFLOZIN
     Dosage: UNK
  50. CLINDAMYCIN [Concomitant]
     Active Substance: CLINDAMYCIN
     Dosage: UNK
  51. Lannapril plus [Concomitant]
     Dosage: UNK
  52. METAMIZOLE [Concomitant]
     Active Substance: METAMIZOLE
     Indication: Pain
     Dosage: UNK
     Dates: start: 20180715
  53. DEXIBUPROFEN [Concomitant]
     Active Substance: DEXIBUPROFEN
     Dosage: UNK
  54. MEROPENEM [Concomitant]
     Active Substance: MEROPENEM
     Dosage: UNK
  55. LOVENOX [Concomitant]
     Active Substance: ENOXAPARIN SODIUM
     Dosage: UNK
  56. RAMIPRIL [Concomitant]
     Active Substance: RAMIPRIL
     Dosage: UNK
  57. DIMETHINDENE [Concomitant]
     Active Substance: DIMETHINDENE
     Dosage: UNK
     Dates: start: 20170414
  58. METHYLPREDNISOLONE [Concomitant]
     Active Substance: METHYLPREDNISOLONE
     Dosage: UNK
  59. RAMIPRIL [Concomitant]
     Active Substance: RAMIPRIL
     Dosage: UNK
  60. CORTISONE ACETATE [Concomitant]
     Active Substance: CORTISONE ACETATE
     Dosage: UNK
  61. FERINJECT [Concomitant]
     Active Substance: FERRIC CARBOXYMALTOSE
     Dosage: UNK
  62. INSPRA [Concomitant]
     Active Substance: EPLERENONE
     Dosage: UNK
  63. POLYETHYLENE GLYCOL 3350\POTASSIUM CHLORIDE\SODIUM BICARBONATE\SODIUM [Concomitant]
     Active Substance: POLYETHYLENE GLYCOL 3350\POTASSIUM CHLORIDE\SODIUM BICARBONATE\SODIUM CHLORIDE
     Dosage: UNK
     Dates: start: 20180715
  64. AVELOX [Concomitant]
     Active Substance: MOXIFLOXACIN HYDROCHLORIDE
     Dosage: UNK
  65. VIBRAMYCIN [Concomitant]
     Active Substance: DOXYCYCLINE
     Dosage: UNK
  66. AMLODIPINE BESYLATE [Concomitant]
     Active Substance: AMLODIPINE BESYLATE
     Dosage: UNK

REACTIONS (1)
  - Pulmonary oedema [Recovered/Resolved]

NARRATIVE: CASE EVENT DATE: 20190704
